FAERS Safety Report 6385139-6 (Version None)
Quarter: 2009Q4

REPORT INFORMATION
  Report Type: 
  Country: None (occurrence: None)
  Receive Date: 20091002
  Receipt Date: 20090929
  Transmission Date: 20100525
  Serious: Yes (Hospitalization)
  Sender: FDA-Public Use
  Company Number: US-JNJFOC-20090908452

PATIENT
  Age: 8 Month
  Sex: Male

DRUGS (2)
  1. ALUMINUM HYDROXIDE/MAGNESIUM HYDROXIDE [Suspect]
     Indication: GASTROOESOPHAGEAL REFLUX DISEASE
     Dosage: APPROX. 2025 MG ALUMINUM HYDROXIDE/DAY FOR 6 MONTHS. 225 MG OF ALUMINUM HYDROXIDE/ 5 ML OF ANTACID.
     Route: 048
  2. RANITIDINE [Concomitant]
     Indication: GASTROOESOPHAGEAL REFLUX DISEASE

REACTIONS (3)
  - ACCIDENTAL OVERDOSE [None]
  - BONE METABOLISM DISORDER [None]
  - HYPOPHOSPHATAEMIA [None]
